FAERS Safety Report 9432717 (Version 1)
Quarter: 2013Q3

REPORT INFORMATION
  Report Type: Spontaneous
  Country: US (occurrence: US)
  Receive Date: 20130731
  Receipt Date: 20130731
  Transmission Date: 20140515
  Serious: No
  Sender: FDA-Public Use
  Company Number: US-BAYER-2013-091519

PATIENT
  Age: 27 Year
  Sex: Female
  Weight: 73.47 kg

DRUGS (3)
  1. MIDOL EXTENDED RELIEF CAPLET [Suspect]
     Dosage: 2 DF, PRN
     Route: 048
  2. MIDOL MENSTRUAL COMPLETE FORMULA [Suspect]
     Dosage: 2 DF, PRN
     Route: 048
  3. MIDOL PM [Suspect]
     Dosage: 2 DF, PRN
     Route: 048

REACTIONS (1)
  - Drug ineffective [None]
